FAERS Safety Report 13784526 (Version 1)
Quarter: 2017Q3

REPORT INFORMATION
  Report Type: Spontaneous
  Country: US (occurrence: US)
  Receive Date: 20170724
  Receipt Date: 20170724
  Transmission Date: 20171127
  Serious: No
  Sender: FDA-Public Use
  Company Number: None

PATIENT
  Age: 34 Year
  Sex: Female

DRUGS (9)
  1. URSODOL [Concomitant]
  2. OCALIVA [Suspect]
     Active Substance: OBETICHOLIC ACID
     Indication: BILIARY CIRRHOSIS PRIMARY
     Route: 048
     Dates: start: 20170615
  3. CLARITIN [Concomitant]
     Active Substance: LORATADINE
  4. AZASAN [Concomitant]
     Active Substance: AZATHIOPRINE
  5. CHOLESTYRAM [Concomitant]
     Active Substance: CHOLESTYRAMINE
  6. TRIAMCINOLON [Concomitant]
  7. SPIRONOLACT [Concomitant]
  8. AZATHIOPRINE. [Concomitant]
     Active Substance: AZATHIOPRINE
  9. CIRCUMIN [Concomitant]

REACTIONS (3)
  - Fatigue [None]
  - Pruritus [None]
  - Dyspepsia [None]

NARRATIVE: CASE EVENT DATE: 20170710
